FAERS Safety Report 8890227 (Version 1)
Quarter: 2012Q4

REPORT INFORMATION
  Report Type: 
  Country: FR (occurrence: FR)
  Receive Date: 20121107
  Receipt Date: 20121107
  Transmission Date: 20130627
  Serious: Yes (Other)
  Sender: FDA-Public Use
  Company Number: FR-PFIZER INC-2012114376

PATIENT
  Age: 72 Year
  Sex: Male
  Weight: 86 kg

DRUGS (1)
  1. VFEND [Suspect]
     Indication: CANDIDIASIS RESPIRATORY
     Dosage: 200 mg, 2x/day
     Route: 048

REACTIONS (2)
  - Amaurosis [Recovered/Resolved]
  - Visual acuity reduced [Recovered/Resolved]
